FAERS Safety Report 14229495 (Version 1)
Quarter: 2017Q4

REPORT INFORMATION
  Report Type: Spontaneous
  Country: US (occurrence: None)
  Receive Date: 20171127
  Receipt Date: 20171127
  Transmission Date: 20180321
  Serious: No
  Sender: FDA-Public Use
  Company Number: None

PATIENT
  Sex: Female
  Weight: 78.93 kg

DRUGS (2)
  1. RASUVO [Suspect]
     Active Substance: METHOTREXATE SODIUM
     Indication: PSORIATIC ARTHROPATHY
     Dosage: DOSE AMOUNT - 20 MG (0.4ML)
     Route: 058
     Dates: start: 201605
  2. RASUVO [Suspect]
     Active Substance: METHOTREXATE SODIUM
     Indication: JUVENILE PSORIATIC ARTHRITIS
     Dosage: DOSE AMOUNT - 20 MG (0.4ML)
     Route: 058
     Dates: start: 201605

REACTIONS (2)
  - Contusion [None]
  - Road traffic accident [None]
